FAERS Safety Report 15290509 (Version 1)
Quarter: 2018Q3

REPORT INFORMATION
  Report Type: Report from Study
  Country: US (occurrence: US)
  Receive Date: 20180817
  Receipt Date: 20180817
  Transmission Date: 20181010
  Serious: Yes (Death, Other)
  Sender: FDA-Public Use
  Company Number: US-PFIZER INC-2018161813

PATIENT
  Age: 66 Year
  Sex: Female

DRUGS (1)
  1. IBRANCE [Suspect]
     Active Substance: PALBOCICLIB
     Indication: BREAST CANCER FEMALE
     Dosage: 100 MG, CYCLIC (ONCE DAILY FOR 21 DAYS IN A ROW FOLLOWED BY 7 DAYS OFF EVERY 28 DAYS)
     Route: 048
     Dates: start: 20180312, end: 20180716

REACTIONS (12)
  - Ascites [Not Recovered/Not Resolved]
  - Fatigue [Not Recovered/Not Resolved]
  - White blood cell count decreased [Not Recovered/Not Resolved]
  - Constipation [Unknown]
  - Oropharyngeal pain [Recovering/Resolving]
  - Death [Fatal]
  - Vomiting [Unknown]
  - Sinus congestion [Recovering/Resolving]
  - Viral infection [Recovering/Resolving]
  - Cough [Recovering/Resolving]
  - Anaemia [Unknown]
  - Nausea [Unknown]

NARRATIVE: CASE EVENT DATE: 2018
